FAERS Safety Report 8234686-0 (Version None)
Quarter: 2012Q1

REPORT INFORMATION
  Report Type: 
  Country: None (occurrence: None)
  Receive Date: 20120326
  Receipt Date: 20120319
  Transmission Date: 20120608
  Serious: Yes (Other)
  Sender: FDA-Public Use
  Company Number: US-PFIZER INC-2012071463

PATIENT
  Sex: Female
  Weight: 56.689 kg

DRUGS (2)
  1. TRAVATAN [Suspect]
     Indication: OCULAR HYPERAEMIA
     Dosage: UNK, 1X/DAY
     Route: 047
     Dates: start: 20120201
  2. XALATAN [Suspect]
     Indication: OCULAR HYPERAEMIA
     Dosage: UNK, 1X/DAY
     Route: 047
     Dates: end: 20120201

REACTIONS (2)
  - DRUG INEFFECTIVE [None]
  - BLINDNESS [None]
